FAERS Safety Report 4358963-9 (Version None)
Quarter: 2004Q2

REPORT INFORMATION
  Report Type: 
  Country: None (occurrence: None)
  Receive Date: 20040517
  Receipt Date: 20010314
  Transmission Date: 20050107
  Serious: Yes (Hospitalization)
  Sender: FDA-Public Use
  Company Number: US-MERCK-01031627

PATIENT
  Age: 69 Year
  Sex: Female

DRUGS (8)
  1. LORTAB [Concomitant]
     Route: 065
     Dates: start: 20000101
  2. FOSAMAX [Concomitant]
     Route: 065
  3. PREMPRO [Concomitant]
     Route: 065
  4. PREVACID [Concomitant]
     Route: 065
  5. ZESTRIL [Concomitant]
     Route: 065
     Dates: start: 19980101
  6. LITHIUM CARBONATE [Suspect]
     Indication: BIPOLAR DISORDER
     Route: 048
     Dates: end: 20001201
  7. LITHIUM CARBONATE [Suspect]
     Route: 048
     Dates: end: 20001201
  8. VIOXX [Suspect]
     Indication: SCIATICA
     Route: 048
     Dates: start: 20000101

REACTIONS (14)
  - BLINDNESS [None]
  - CONFUSIONAL STATE [None]
  - DRUG INTERACTION [None]
  - HAEMATOCRIT DECREASED [None]
  - HAEMOGLOBIN DECREASED [None]
  - HALLUCINATION [None]
  - HEADACHE [None]
  - INCOHERENT [None]
  - MENTAL STATUS CHANGES [None]
  - NEUROPATHY [None]
  - OEDEMA PERIPHERAL [None]
  - THERAPEUTIC AGENT TOXICITY [None]
  - TREATMENT NONCOMPLIANCE [None]
  - TREMOR [None]
